FAERS Safety Report 4727409-0 (Version None)
Quarter: 2005Q3

REPORT INFORMATION
  Report Type: 
  Country: None (occurrence: None)
  Receive Date: 20050726
  Receipt Date: 20050715
  Transmission Date: 20060218
  Serious: Yes (Hospitalization, Other)
  Sender: FDA-Public Use
  Company Number: 2005091220

PATIENT
  Age: 44 Year
  Sex: Male
  Weight: 92.0802 kg

DRUGS (6)
  1. XANAX [Suspect]
     Indication: ANXIETY
     Dosage: (0.25 MG, AS NECESSARY), ORAL
     Route: 048
     Dates: start: 20050331, end: 20050614
  2. ZOLOFT [Suspect]
     Indication: PANIC ATTACK
     Dates: start: 20050331, end: 20050407
  3. PEGINTERFERON ALFA-2B (PEGINTERFERON ALFA-2B) [Suspect]
     Indication: HEPATITIS C
     Dosage: (150 MCG, 1 IN 1 WK), SUBCUTANEOUS
     Route: 058
     Dates: start: 20050304
  4. REBETOL [Suspect]
     Indication: HEPATITIS C
     Dosage: 1200 MG (1 IN 1 D), ORAL
     Route: 048
     Dates: start: 20050304
  5. EFFEXOR XR [Suspect]
     Indication: ANXIETY
     Dosage: 75 MG (1 IN 1 D), ORAL
     Route: 048
     Dates: start: 20050215, end: 20050331
  6. EFFEXOR XR [Suspect]
     Indication: COLD SWEAT
     Dosage: 75 MG (1 IN 1 D), ORAL
     Route: 048
     Dates: start: 20050215, end: 20050331

REACTIONS (34)
  - ABDOMINAL PAIN LOWER [None]
  - AGITATION [None]
  - ANXIETY [None]
  - BRAIN OEDEMA [None]
  - CLAVICLE FRACTURE [None]
  - CONCUSSION [None]
  - DISORIENTATION [None]
  - DISSOCIATIVE IDENTITY DISORDER [None]
  - DIZZINESS [None]
  - DRUG HYPERSENSITIVITY [None]
  - DRY MOUTH [None]
  - DYSARTHRIA [None]
  - DYSPNOEA [None]
  - FALL [None]
  - FEELING HOT AND COLD [None]
  - HEAD INJURY [None]
  - HEADACHE [None]
  - HEART RATE INCREASED [None]
  - HYPERHIDROSIS [None]
  - INCORRECT DOSE ADMINISTERED [None]
  - LOSS OF CONSCIOUSNESS [None]
  - PAIN IN EXTREMITY [None]
  - PANIC ATTACK [None]
  - PHARYNGEAL OEDEMA [None]
  - RED BLOOD CELL COUNT DECREASED [None]
  - REFUSAL OF TREATMENT BY PATIENT [None]
  - RESPIRATORY RATE INCREASED [None]
  - RIB FRACTURE [None]
  - ROAD TRAFFIC ACCIDENT [None]
  - SHOULDER PAIN [None]
  - UPPER RESPIRATORY TRACT INFECTION [None]
  - WEIGHT DECREASED [None]
  - WHEEZING [None]
  - WHITE BLOOD CELL COUNT DECREASED [None]
